FAERS Safety Report 9354511 (Version 1)
Quarter: 2013Q2

REPORT INFORMATION
  Report Type: Spontaneous
  Country: US (occurrence: US)
  Receive Date: 20130618
  Receipt Date: 20130618
  Transmission Date: 20140414
  Serious: No
  Sender: FDA-Public Use
  Company Number: US-009507513-1306USA005902

PATIENT
  Sex: Female

DRUGS (1)
  1. FOSAMAX [Suspect]
     Dosage: UNK
     Route: 048

REACTIONS (4)
  - Chest pain [Unknown]
  - Osteopenia [Unknown]
  - Anxiety [Unknown]
  - Drug ineffective [Unknown]
